FAERS Safety Report 9447426 (Version 1)
Quarter: 2013Q3

REPORT INFORMATION
  Report Type: Spontaneous
  Country: DE (occurrence: None)
  Receive Date: 20130805
  Receipt Date: 20130805
  Transmission Date: 20140515
  Serious: Yes (Other)
  Sender: FDA-Public Use
  Company Number: GER/GER/13/0033849

PATIENT
  Sex: Female

DRUGS (7)
  1. AMLODIPINE [Suspect]
     Indication: PRODUCT USED FOR UNKNOWN INDICATION
  2. METOPROLOL [Suspect]
     Indication: PRODUCT USED FOR UNKNOWN INDICATION
  3. ALLOPURINOL [Suspect]
     Indication: GLOMERULONEPHRITIS
  4. VALSARTAN [Suspect]
     Indication: PRODUCT USED FOR UNKNOWN INDICATION
  5. HYDROCHLOROTHIAZIDE [Suspect]
     Indication: PRODUCT USED FOR UNKNOWN INDICATION
  6. ALPHA METHYLDOPA [Suspect]
     Indication: PRODUCT USED FOR UNKNOWN INDICATION
  7. DESLORATADINE [Suspect]
     Indication: PRODUCT USED FOR UNKNOWN INDICATION

REACTIONS (5)
  - Pre-eclampsia [None]
  - Amniotic cavity infection [None]
  - Caesarean section [None]
  - Premature labour [None]
  - Exposure during pregnancy [None]
